FAERS Safety Report 23953570 (Version 1)
Quarter: 2024Q2

REPORT INFORMATION
  Report Type: Spontaneous
  Country: US (occurrence: US)
  Receive Date: 20240608
  Receipt Date: 20240608
  Transmission Date: 20240716
  Serious: No
  Sender: FDA-Public Use
  Company Number: US-ELI_LILLY_AND_COMPANY-US202406003732

PATIENT
  Age: 35 Year
  Sex: Female

DRUGS (2)
  1. EMGALITY [Suspect]
     Active Substance: GALCANEZUMAB-GNLM
     Indication: Migraine
     Dosage: 120 MG, UNKNOWN
     Route: 065
     Dates: start: 2023
  2. SIBOGUARD [Concomitant]
     Indication: Product used for unknown indication

REACTIONS (4)
  - Vomiting [Unknown]
  - Nausea [Unknown]
  - Irritable bowel syndrome [Unknown]
  - Food allergy [Unknown]
